FAERS Safety Report 13882492 (Version 3)
Quarter: 2017Q3

REPORT INFORMATION
  Report Type: Report from Study
  Country: DE (occurrence: DE)
  Receive Date: 20170818
  Receipt Date: 20170831
  Transmission Date: 20171127
  Serious: Yes (Hospitalization)
  Sender: FDA-Public Use
  Company Number: GXKR2017DE004118

PATIENT
  Age: 61 Year
  Sex: Male

DRUGS (2)
  1. LEUPRONE HEXAL [Suspect]
     Active Substance: LEUPROLIDE ACETATE
     Dosage: 5 MG, Q3MO
     Route: 058
     Dates: start: 20170524
  2. LEUPRONE HEXAL [Suspect]
     Active Substance: LEUPROLIDE ACETATE
     Indication: PROSTATE CANCER
     Dosage: 3.6 MG, QMO
     Route: 058
     Dates: start: 20170427, end: 20170524

REACTIONS (2)
  - Perineal abscess [Recovering/Resolving]
  - Perineal pain [Recovering/Resolving]

NARRATIVE: CASE EVENT DATE: 20170720
